FAERS Safety Report 5007383-2 (Version None)
Quarter: 2006Q2

REPORT INFORMATION
  Report Type: 
  Country: None (occurrence: None)
  Receive Date: 20060518
  Receipt Date: 20060518
  Transmission Date: 20061013
  Serious: Yes (Hospitalization)
  Sender: FDA-Public Use
  Company Number: None

PATIENT
  Sex: Male

DRUGS (9)
  1. WARFARIN  2 MG [Suspect]
     Indication: CARDIOLIPIN ANTIBODY POSITIVE
     Dosage: 8MG TTHSSA, 6 MG REST OF DAYS  DAILY PO
     Route: 048
  2. WARFARIN  2 MG [Suspect]
     Indication: DEEP VEIN THROMBOSIS
     Dosage: 8MG TTHSSA, 6 MG REST OF DAYS  DAILY PO
     Route: 048
  3. WARFARIN  2 MG [Suspect]
     Indication: DISEASE RECURRENCE
     Dosage: 8MG TTHSSA, 6 MG REST OF DAYS  DAILY PO
     Route: 048
  4. COMBIVENT [Concomitant]
  5. FERROUS SULFATE TAB [Concomitant]
  6. GLYBURIDE [Concomitant]
  7. MAGNESIUM OXIDE [Concomitant]
  8. OMEPRAZOLE [Concomitant]
  9. TERAZOSIN HCL [Concomitant]

REACTIONS (1)
  - RECTAL HAEMORRHAGE [None]
